FAERS Safety Report 9458639 (Version 1)
Quarter: 2013Q3

REPORT INFORMATION
  Report Type: Spontaneous
  Country: US (occurrence: US)
  Receive Date: 20130814
  Receipt Date: 20130814
  Transmission Date: 20140515
  Serious: Yes (Other)
  Sender: FDA-Public Use
  Company Number: US-TEVA-425836USA

PATIENT
  Sex: Male

DRUGS (1)
  1. METRONIDAZOLE [Suspect]

REACTIONS (4)
  - Choking [Unknown]
  - Cough [Unknown]
  - Incorrect route of drug administration [Unknown]
  - Wrong technique in drug usage process [Unknown]
